FAERS Safety Report 8805161 (Version 1)
Quarter: 2012Q4

REPORT INFORMATION
  Report Type: Spontaneous
  Country: US (occurrence: None)
  Receive Date: 20120919
  Receipt Date: 20120919
  Transmission Date: 20130627
  Serious: Yes (Other)
  Sender: FDA-Public Use
  Company Number: None

PATIENT
  Age: 40 Year
  Sex: Female
  Weight: 71.67 kg

DRUGS (1)
  1. DEXTROAMPHETAMINE [Suspect]
     Indication: ADHD, PREDOMINANTLY INATTENTIVE TYPE
     Route: 048
     Dates: start: 20120917, end: 20120918

REACTIONS (10)
  - Malaise [None]
  - Dizziness [None]
  - Nausea [None]
  - Headache [None]
  - Somnolence [None]
  - Feeling abnormal [None]
  - Product substitution issue [None]
  - Product quality issue [None]
  - Drug ineffective [None]
  - Poisoning [None]
